FAERS Safety Report 7379940-X (Version None)
Quarter: 2011Q1

REPORT INFORMATION
  Report Type: 
  Country: None (occurrence: None)
  Receive Date: 20110329
  Receipt Date: 20110322
  Transmission Date: 20110831
  Serious: Yes (Life-Threatening, Other)
  Sender: FDA-Public Use
  Company Number: PHHY2011US23519

PATIENT
  Sex: Female

DRUGS (9)
  1. ASPIRIN [Concomitant]
  2. COQ10 [Concomitant]
  3. POTASSIUM [Concomitant]
  4. ACETAMINOPHEN [Concomitant]
     Indication: HEADACHE
  5. METOPROLOL [Concomitant]
  6. CRESTOR [Concomitant]
  7. DIOVAN [Suspect]
     Dosage: 80 MG, UNK
  8. HYDROCHLOROTHIAZDE TAB [Concomitant]
  9. DIOVAN [Suspect]
     Dosage: 160 MG, QD

REACTIONS (6)
  - PYREXIA [None]
  - LIFE EXPECTANCY SHORTENED [None]
  - BODY TEMPERATURE DECREASED [None]
  - HEADACHE [None]
  - NEOPLASM MALIGNANT [None]
  - HYPOTENSION [None]
